FAERS Safety Report 21407848 (Version 1)
Quarter: 2022Q4

REPORT INFORMATION
  Report Type: Spontaneous
  Country: US (occurrence: US)
  Receive Date: 20221004
  Receipt Date: 20221004
  Transmission Date: 20230113
  Serious: No
  Sender: FDA-Public Use
  Company Number: US-UCBSA-2022050792

PATIENT
  Sex: Male

DRUGS (1)
  1. NEUPRO [Suspect]
     Active Substance: ROTIGOTINE
     Indication: Product used for unknown indication
     Dosage: 4MG
     Route: 062

REACTIONS (5)
  - Tremor [Unknown]
  - Therapy interrupted [Unknown]
  - Product availability issue [Unknown]
  - Product adhesion issue [Unknown]
  - Product quality issue [Unknown]
